FAERS Safety Report 6664348-2 (Version None)
Quarter: 2010Q2

REPORT INFORMATION
  Report Type: 
  Country: None (occurrence: None)
  Receive Date: 20100401
  Receipt Date: 20100325
  Transmission Date: 20101027
  Serious: Yes (Hospitalization, Other)
  Sender: FDA-Public Use
  Company Number: PHEH2006US01250

PATIENT
  Sex: Male
  Weight: 74.829 kg

DRUGS (20)
  1. AREDIA [Suspect]
     Indication: MULTIPLE MYELOMA
     Dosage: UNK,UNK
     Dates: start: 19980101
  2. ZOMETA [Suspect]
     Indication: MULTIPLE MYELOMA
     Dosage: UNK,UNK
     Dates: start: 20020101, end: 20040901
  3. EFFEXOR XR [Concomitant]
     Dosage: 150 MG, QD
     Route: 048
  4. HYDROCODONE [Concomitant]
  5. MORPHINE SULFATE [Concomitant]
     Dosage: 30 MG, UNK
  6. ALPRAZOLAM [Concomitant]
     Dosage: 0.25 MG, PRN
  7. SPIRONOLACTONE W/ HYDROCHLOROTHIAZIDE [Concomitant]
     Dosage: UNK, QD
  8. MAVIK [Concomitant]
     Dosage: 2 MG, QD
  9. PROCHLORPERAZINE [Concomitant]
     Dosage: 10 MG, PRN
  10. HYDROCODONE BITARTRATE AND ACETAMINOPHEN [Concomitant]
     Dosage: 10/325  3-4 DAILY
  11. PHENERGAN ^AVENTIS PHARMA^ [Concomitant]
  12. COUMADIN [Concomitant]
  13. OXYCONTIN [Concomitant]
  14. MS CONTIN [Concomitant]
  15. LORTAB [Concomitant]
  16. FLEXERIL [Concomitant]
  17. MIRALAX [Concomitant]
  18. PREVACID [Concomitant]
  19. AMBIEN [Concomitant]
  20. REVLIMID [Concomitant]

REACTIONS (37)
  - ABSCESS ORAL [None]
  - ALVEOLOPLASTY [None]
  - BONE DEBRIDEMENT [None]
  - BONE DISORDER [None]
  - CELLULITIS [None]
  - CLAVICLE FRACTURE [None]
  - CONSTIPATION [None]
  - DEEP VEIN THROMBOSIS [None]
  - DENTAL PROSTHESIS PLACEMENT [None]
  - DYSPHAGIA [None]
  - ERYTHEMA [None]
  - EXCESSIVE GRANULATION TISSUE [None]
  - FACE OEDEMA [None]
  - FIBROSIS [None]
  - GINGIVAL BLEEDING [None]
  - GINGIVAL OEDEMA [None]
  - HYPERBARIC OXYGEN THERAPY [None]
  - INCISIONAL DRAINAGE [None]
  - INDURATION [None]
  - INFECTION [None]
  - JAW FRACTURE [None]
  - JAW OPERATION [None]
  - METASTASES TO BONE [None]
  - ORAL PAIN [None]
  - ORAL SURGERY [None]
  - OSTEOMYELITIS [None]
  - OSTEONECROSIS [None]
  - OSTEOPOROSIS [None]
  - PAIN IN JAW [None]
  - PRIMARY SEQUESTRUM [None]
  - PYREXIA [None]
  - REGURGITATION [None]
  - SALIVARY DUCT OBSTRUCTION [None]
  - SURGERY [None]
  - SWELLING [None]
  - TOOTH EXTRACTION [None]
  - TRISMUS [None]
